FAERS Safety Report 8484849-4 (Version None)
Quarter: 2012Q3

REPORT INFORMATION
  Report Type: 
  Country: None (occurrence: None)
  Receive Date: 20120703
  Receipt Date: 20120626
  Transmission Date: 20120928
  Serious: Yes (Life-Threatening, Hospitalization)
  Sender: FDA-Public Use
  Company Number: MX-JNJFOC-20120613372

PATIENT
  Sex: Female
  Weight: 5 kg

DRUGS (6)
  1. ANTIBIOITCS NOS [Concomitant]
  2. CONCENTRATED MOTRIN INFANTS DROPS [Suspect]
     Route: 048
  3. VITAMINS NOS [Concomitant]
     Indication: VITAMIN SUPPLEMENTATION
  4. CONCENTRATED MOTRIN INFANTS DROPS [Suspect]
     Indication: PYREXIA
     Dosage: ON AN UNSPECIFIED DATE BETWEEN 16-JUN-2012 TO 22-JUN-2012
     Route: 048
     Dates: start: 20120618, end: 20120618
  5. VACCINES [Suspect]
     Indication: PRODUCT USED FOR UNKNOWN INDICATION
     Route: 065
     Dates: start: 20120618
  6. OMEPRAZOLE [Concomitant]

REACTIONS (2)
  - CEREBRAL INFARCTION [None]
  - COMA [None]
